FAERS Safety Report 10661833 (Version 1)
Quarter: 2014Q4

REPORT INFORMATION
  Report Type: Spontaneous
  Country: TH (occurrence: TH)
  Receive Date: 20141218
  Receipt Date: 20141218
  Transmission Date: 20150529
  Serious: Yes (Hospitalization)
  Sender: FDA-Public Use
  Company Number: TH-OTSUKA-JP-2014-19746

PATIENT

DRUGS (7)
  1. PYRITINOL HCL [Suspect]
     Active Substance: PYRITINOL HYDROCHLORIDE
     Indication: PRODUCT USED FOR UNKNOWN INDICATION
     Dosage: UNK, TID
     Route: 048
     Dates: start: 20111121, end: 20111220
  2. MEMANTINE [Suspect]
     Active Substance: MEMANTINE
     Indication: PRODUCT USED FOR UNKNOWN INDICATION
     Dosage: UNK, QD
     Route: 048
     Dates: start: 20111121, end: 20111220
  3. DIHYDROERGOCRISTINE [Suspect]
     Active Substance: DIHYDROERGOCRISTINE
     Indication: PRODUCT USED FOR UNKNOWN INDICATION
     Dosage: UNK, TID
     Route: 065
     Dates: start: 20111121, end: 20111220
  4. ASPIRIN. [Suspect]
     Active Substance: ASPIRIN
     Indication: PRODUCT USED FOR UNKNOWN INDICATION
     Dosage: 81 MG MILLIGRAM(S), QD
     Route: 048
     Dates: start: 20111121, end: 20111220
  5. DONEPEZIL [Suspect]
     Active Substance: DONEPEZIL
     Indication: PRODUCT USED FOR UNKNOWN INDICATION
     Dosage: UNK, QD
     Route: 048
     Dates: start: 20111121, end: 20111220
  6. PLETAAL [Suspect]
     Active Substance: CILOSTAZOL
     Indication: PRODUCT USED FOR UNKNOWN INDICATION
     Dosage: UNK, QD
     Route: 048
     Dates: start: 20111121, end: 20111220
  7. ATORVASTATIN [Suspect]
     Active Substance: ATORVASTATIN
     Indication: PRODUCT USED FOR UNKNOWN INDICATION
     Dosage: 10 MG MILLIGRAM(S), QD
     Route: 048
     Dates: start: 20111121, end: 20111220

REACTIONS (2)
  - Serum sickness [Recovered/Resolved]
  - Vasculitis [Recovered/Resolved]

NARRATIVE: CASE EVENT DATE: 20111220
